FAERS Safety Report 18701099 (Version 2)
Quarter: 2021Q1

REPORT INFORMATION
  Report Type: Report from Study
  Country: FR (occurrence: FR)
  Receive Date: 20210105
  Receipt Date: 20210211
  Transmission Date: 20210419
  Serious: Yes (Hospitalization)
  Sender: FDA-Public Use
  Company Number: FR-ROCHE-2742848

PATIENT
  Age: 37 Year
  Sex: Female

DRUGS (10)
  1. EMEND [Concomitant]
     Active Substance: APREPITANT
     Indication: VOMITING
     Dates: start: 20200607, end: 20201020
  2. BEVACIZUMAB. [Suspect]
     Active Substance: BEVACIZUMAB
     Indication: NON-SMALL CELL LUNG CANCER
     Dosage: MOST RECENT DOSE: 02/DEC/2020, 9 CYCLES?EVERY 1 CYCLE(S) DAY1 OF CYCLE OF 21 DAYS
     Route: 042
     Dates: start: 20200608
  3. ATEZOLIZUMAB. [Suspect]
     Active Substance: ATEZOLIZUMAB
     Indication: NON-SMALL CELL LUNG CANCER
     Dosage: MOST RECENT DOSE: 20/OCT/2020, 7 CYCLES?EVERY 1 CYCLES DAY1 OF CYCLE OF 21 DAYS
     Route: 042
     Dates: start: 20200608
  4. PEMETREXED. [Concomitant]
     Active Substance: PEMETREXED
     Indication: NON-SMALL CELL LUNG CANCER
     Dosage: 18?AUG?2020
     Route: 042
     Dates: start: 20200608, end: 2020
  5. CISPLATIN. [Concomitant]
     Active Substance: CISPLATIN
     Indication: NON-SMALL CELL LUNG CANCER
     Dosage: 18?AUG?2020, 4 CYCLES
     Route: 042
     Dates: start: 20200608, end: 2020
  6. CISPLATIN. [Concomitant]
     Active Substance: CISPLATIN
     Dosage: 18?AUG?2020, 4 CYCLES
     Route: 042
     Dates: start: 2020, end: 20200818
  7. PRIMPERAN [Concomitant]
     Active Substance: METOCLOPRAMIDE HYDROCHLORIDE
     Indication: VOMITING
     Dates: start: 20200607, end: 20201030
  8. PEMETREXED. [Concomitant]
     Active Substance: PEMETREXED
     Dosage: 18?AUG?2020
     Route: 042
     Dates: start: 2020, end: 20201020
  9. ZOPHREN [Concomitant]
     Active Substance: ONDANSETRON
     Indication: VOMITING
     Dates: start: 20200607, end: 20201030
  10. DOLIPRANE CODEINE [Concomitant]
     Active Substance: ACETAMINOPHEN\CODEINE PHOSPHATE
     Indication: HEADACHE
     Route: 048
     Dates: start: 2020

REACTIONS (4)
  - Hyperthyroidism [Recovering/Resolving]
  - Aspartate aminotransferase increased [Recovering/Resolving]
  - Alanine aminotransferase increased [Recovering/Resolving]
  - Metastases to meninges [Not Recovered/Not Resolved]

NARRATIVE: CASE EVENT DATE: 20201201
